FAERS Safety Report 16075663 (Version 4)
Quarter: 2019Q3

REPORT INFORMATION
  Report Type: Report from Study
  Country: US (occurrence: US)
  Receive Date: 20190315
  Receipt Date: 20190723
  Transmission Date: 20191004
  Serious: Yes (Hospitalization)
  Sender: FDA-Public Use
  Company Number: US-ROCHE-1996343

PATIENT
  Age: 60 Year
  Sex: Male
  Weight: 99.88 kg

DRUGS (14)
  1. OCREVUS [Suspect]
     Active Substance: OCRELIZUMAB
     Indication: RELAPSING MULTIPLE SCLEROSIS
     Dosage: ONGOING YES
     Route: 042
     Dates: start: 20180925
  2. BACLOFEN. [Concomitant]
     Active Substance: BACLOFEN
     Indication: OFF LABEL USE
  3. RITUXAN [Suspect]
     Active Substance: RITUXIMAB
     Indication: OFF LABEL USE
  4. OCREVUS [Suspect]
     Active Substance: OCRELIZUMAB
     Indication: OFF LABEL USE
  5. DULCOLAXO [Concomitant]
     Indication: OFF LABEL USE
  6. BACTRIM [Concomitant]
     Active Substance: SULFAMETHOXAZOLE\TRIMETHOPRIM
     Indication: OFF LABEL USE
     Route: 048
  7. VIAGRA [Concomitant]
     Active Substance: SILDENAFIL CITRATE
     Indication: OFF LABEL USE
  8. GABAPENTIN. [Concomitant]
     Active Substance: GABAPENTIN
     Indication: OFF LABEL USE
     Dosage: ONGOING :YES
     Route: 048
  9. NITROFURANTOIN. [Concomitant]
     Active Substance: NITROFURANTOIN
     Indication: OFF LABEL USE
     Dosage: ONGOING:YES
     Route: 048
  10. CAVERJECT [Concomitant]
     Active Substance: ALPROSTADIL
     Indication: OFF LABEL USE
  11. OCREVUS [Suspect]
     Active Substance: OCRELIZUMAB
     Indication: SECONDARY PROGRESSIVE MULTIPLE SCLEROSIS
     Route: 042
     Dates: start: 2017
  12. BACLOFEN. [Concomitant]
     Active Substance: BACLOFEN
     Indication: MUSCLE SPASMS
     Dosage: ONGOING:YES
     Route: 048
  13. RITUXAN [Suspect]
     Active Substance: RITUXIMAB
     Indication: MULTIPLE SCLEROSIS
     Route: 042
     Dates: start: 2008, end: 20161205
  14. METHYLPREDNISOLONE. [Concomitant]
     Active Substance: METHYLPREDNISOLONE
     Indication: OFF LABEL USE

REACTIONS (25)
  - Sepsis [Recovered/Resolved]
  - Pollakiuria [Unknown]
  - Intentional product use issue [Unknown]
  - Immunoglobulins decreased [Unknown]
  - Prostatitis [Not Recovered/Not Resolved]
  - Gait disturbance [Recovered/Resolved]
  - Hypoaesthesia [Unknown]
  - Burning sensation [Unknown]
  - Rash [Not Recovered/Not Resolved]
  - Intentional product use issue [Unknown]
  - Urinary tract infection [Recovered/Resolved]
  - Fatigue [Unknown]
  - Off label use [Unknown]
  - Blister [Recovering/Resolving]
  - Pyrexia [Unknown]
  - Dysaesthesia [Unknown]
  - Paraesthesia [Unknown]
  - Constipation [Unknown]
  - Pruritus [Recovering/Resolving]
  - Bladder disorder [Recovered/Resolved]
  - Infection [Recovered/Resolved]
  - Fine motor skill dysfunction [Unknown]
  - Hypersensitivity [Recovering/Resolving]
  - Pollakiuria [Unknown]
  - Hypoacusis [Not Recovered/Not Resolved]

NARRATIVE: CASE EVENT DATE: 2008
